FAERS Safety Report 13637994 (Version 1)
Quarter: 2017Q2

REPORT INFORMATION
  Report Type: Spontaneous
  Country: RU (occurrence: RU)
  Receive Date: 20170609
  Receipt Date: 20170609
  Transmission Date: 20170830
  Serious: Yes (Hospitalization)
  Sender: FDA-Public Use
  Company Number: RU-ASTRAZENECA-2017SE59920

PATIENT
  Age: 83 Year
  Sex: Female
  Weight: 70 kg

DRUGS (5)
  1. PULMICORT TURBUHALER [Concomitant]
     Active Substance: BUDESONIDE
  2. LOZAP [Concomitant]
     Active Substance: LOSARTAN
  3. AMIODARONE [Concomitant]
     Active Substance: AMIODARONE
  4. SYMBICORT [Suspect]
     Active Substance: BUDESONIDE\FORMOTEROL FUMARATE DIHYDRATE
     Indication: ASTHMA
     Dosage: 160/4,5 MKG, TWO TIMES A DAY
     Route: 055
     Dates: start: 201606
  5. VEROSPIRON [Concomitant]
     Active Substance: SPIRONOLACTONE

REACTIONS (1)
  - Fatigue [Not Recovered/Not Resolved]

NARRATIVE: CASE EVENT DATE: 201702
